FAERS Safety Report 5083910-4 (Version None)
Quarter: 2006Q3

REPORT INFORMATION
  Report Type: 
  Country: None (occurrence: None)
  Receive Date: 20060727
  Receipt Date: 20060413
  Transmission Date: 20061208
  Serious: Yes (Other)
  Sender: FDA-Public Use
  Company Number: 2006051388

PATIENT
  Age: 27 Year
  Sex: Female
  Weight: 49.8957 kg

DRUGS (2)
  1. LYRICA [Suspect]
     Indication: NEUROPATHY
     Dosage: 200 MG (50 MG, 4 IN 1 D)
     Dates: start: 20060101
  2. WELLBUTRIN [Concomitant]

REACTIONS (3)
  - ABDOMINAL PAIN UPPER [None]
  - DYSPEPSIA [None]
  - NAUSEA [None]
